FAERS Safety Report 20716833 (Version 1)
Quarter: 2022Q2

REPORT INFORMATION
  Report Type: Spontaneous
  Country: US (occurrence: US)
  Receive Date: 20220416
  Receipt Date: 20220416
  Transmission Date: 20220721
  Serious: Yes (Hospitalization, Other)
  Sender: FDA-Public Use
  Company Number: US-Accord-261139

PATIENT
  Sex: Male

DRUGS (1)
  1. BUPROPION [Suspect]
     Active Substance: BUPROPION
     Indication: Product used for unknown indication
     Dosage: 8 TO 9 RANDOM COMBINATIONS OF 150-MG AND 300-MG TABLETS OF BUPROPION

REACTIONS (6)
  - Hyponatraemia [Recovered/Resolved]
  - Suicidal ideation [Unknown]
  - Psychotic disorder [Unknown]
  - Incorrect route of product administration [Unknown]
  - Overdose [Unknown]
  - Drug abuse [Unknown]
